FAERS Safety Report 10548016 (Version 1)
Quarter: 2014Q4

REPORT INFORMATION
  Report Type: Spontaneous
  Country: US (occurrence: None)
  Receive Date: 20141027
  Receipt Date: 20141027
  Transmission Date: 20150529
  Serious: Yes (Other)
  Sender: FDA-Public Use
  Company Number: None

PATIENT
  Age: 69 Year
  Sex: Female
  Weight: 99.79 kg

DRUGS (1)
  1. LEVOFLOXACIN. [Suspect]
     Active Substance: LEVOFLOXACIN
     Indication: DIVERTICULUM
     Dosage: 1 TAB DAILY FOR 14 DAYS ONCE DAILY TAKEN BY MOUTH
     Route: 048
     Dates: start: 20141008, end: 20141014

REACTIONS (4)
  - Paranoia [None]
  - Anxiety [None]
  - Violence-related symptom [None]
  - Abnormal behaviour [None]

NARRATIVE: CASE EVENT DATE: 20141014
